FAERS Safety Report 6281282-0 (Version None)
Quarter: 2009Q3

REPORT INFORMATION
  Report Type: 
  Country: None (occurrence: None)
  Receive Date: 20090724
  Receipt Date: 20090410
  Transmission Date: 20100115
  Serious: Yes (Hospitalization)
  Sender: FDA-Public Use
  Company Number: A0779037A

PATIENT
  Age: 65 Year
  Sex: Female
  Weight: 84.5 kg

DRUGS (8)
  1. AVANDIA [Suspect]
     Indication: DIABETES MELLITUS
     Dosage: 2MG TWICE PER DAY
     Route: 048
     Dates: start: 20050701, end: 20061001
  2. COMBIVIR [Concomitant]
  3. KALETRA [Concomitant]
  4. VIREAD [Concomitant]
  5. PENLAC [Concomitant]
  6. HUMALOG [Concomitant]
  7. ZESTRIL [Concomitant]
  8. ISONIAZID [Concomitant]

REACTIONS (1)
  - CARDIAC FAILURE CONGESTIVE [None]
